FAERS Safety Report 10906596 (Version 2)
Quarter: 2015Q1

REPORT INFORMATION
  Report Type: Spontaneous
  Country: US (occurrence: US)
  Receive Date: 20150312
  Receipt Date: 20150320
  Transmission Date: 20150721
  Serious: No
  Sender: FDA-Public Use
  Company Number: US-AMGEN-USASP2015021910

PATIENT
  Sex: Female

DRUGS (2)
  1. METHOTREXATE [Concomitant]
     Active Substance: METHOTREXATE
     Dosage: UNK
  2. ENBREL [Suspect]
     Active Substance: ETANERCEPT
     Indication: PRODUCT USED FOR UNKNOWN INDICATION
     Dosage: UNK
     Route: 065

REACTIONS (8)
  - Pharyngitis streptococcal [Unknown]
  - Influenza [Unknown]
  - Bronchitis [Unknown]
  - Gastroenteritis viral [Unknown]
  - Ear infection [Unknown]
  - Nasopharyngitis [Unknown]
  - Malaise [Unknown]
  - Sinusitis [Unknown]
